FAERS Safety Report 7392571-0 (Version None)
Quarter: 2011Q1

REPORT INFORMATION
  Report Type: 
  Country: None (occurrence: None)
  Receive Date: 20110330
  Receipt Date: 20110330
  Transmission Date: 20110831
  Serious: Yes (Hospitalization)
  Sender: FDA-Public Use
  Company Number: None

PATIENT
  Sex: Female
  Weight: 108 kg

DRUGS (19)
  1. LEVOFLOXACIN [Suspect]
  2. CARBOPLATIN [Suspect]
     Dosage: 620 MG
  3. METAMUCIL-2 [Concomitant]
  4. LEVOTHYROXINE [Concomitant]
  5. METFORMIN [Concomitant]
  6. NIACIN [Concomitant]
  7. OMEPERAZOLE [Concomitant]
  8. PROMETHAZINE [Concomitant]
  9. PERCOCET [Concomitant]
  10. PACLITAXEL [Suspect]
     Dosage: 350 MG
  11. DIFUSINOL [Concomitant]
  12. METOPROLOL ER SUCCINATE [Concomitant]
  13. ALOE VESTA [Concomitant]
  14. ASPIRIN [Concomitant]
  15. FILGRASTIM [Concomitant]
  16. LISINOPROLOL/HCTZ [Concomitant]
  17. FAMOTIDINE [Concomitant]
  18. ZOSYN [Concomitant]
  19. ACETAMINOPHEN AND OXYCODONE HCL [Concomitant]

REACTIONS (12)
  - DIARRHOEA [None]
  - URINE OUTPUT DECREASED [None]
  - NEUTROPENIA [None]
  - ANORECTAL DISORDER [None]
  - HAEMOGLOBIN DECREASED [None]
  - BLOOD UREA INCREASED [None]
  - DISCOMFORT [None]
  - EXCORIATION [None]
  - BLOOD SODIUM DECREASED [None]
  - DECREASED APPETITE [None]
  - ASTHENIA [None]
  - WHITE BLOOD CELL COUNT DECREASED [None]
